FAERS Safety Report 10312809 (Version 1)
Quarter: 2014Q3

REPORT INFORMATION
  Report Type: Report from Study
  Country: JP (occurrence: None)
  Receive Date: 20140716
  Receipt Date: 20140716
  Transmission Date: 20150326
  Serious: Yes (Hospitalization, Other)
  Sender: FDA-Public Use
  Company Number: SYM-2014-22956

PATIENT
  Age: 72 Year
  Sex: Male

DRUGS (5)
  1. VIGAMOX(MOXIFLOXACIN HYDROCHLORIDE)(MOXIFLOXACIN HYDROCHLORIDE) [Concomitant]
  2. VISUDYNE [Suspect]
     Active Substance: VERTEPORFIN
     Indication: AGE-RELATED MACULAR DEGENERATION
     Dosage: 1 DOSAGE FORMS, INTRAVENOUS
     Route: 042
     Dates: start: 200707, end: 200707
  3. AVASTIN(SIMVASTATIN)(SIMVASTIN) [Concomitant]
  4. PEGAPTANIB(PEGAPTANIB)(PEGAPTANIB) [Concomitant]
  5. LUCENTIS [Suspect]
     Active Substance: RANIBIZUMAB
     Indication: AGE-RELATED MACULAR DEGENERATION
     Route: 031
     Dates: start: 20090409

REACTIONS (6)
  - Choroidal neovascularisation [None]
  - Cataract [None]
  - Choroidal haemorrhage [None]
  - Retinal haemorrhage [None]
  - Age-related macular degeneration [None]
  - Disease recurrence [None]

NARRATIVE: CASE EVENT DATE: 20110312
